FAERS Safety Report 10371264 (Version 1)
Quarter: 2014Q3

REPORT INFORMATION
  Report Type: Spontaneous
  Country: US (occurrence: None)
  Receive Date: 20140807
  Receipt Date: 20140807
  Transmission Date: 20150326
  Serious: Yes (Other)
  Sender: FDA-Public Use
  Company Number: None

PATIENT
  Age: 65 Year
  Sex: Female
  Weight: 64.41 kg

DRUGS (1)
  1. TRAMADOL [Suspect]
     Active Substance: TRAMADOL
     Indication: ARTHRITIS
     Dosage: 4 TIMES A DAY THREE TIMES DAILY
     Route: 048

REACTIONS (2)
  - Vision blurred [None]
  - Cataract operation [None]

NARRATIVE: CASE EVENT DATE: 20140701
